FAERS Safety Report 10612222 (Version 2)
Quarter: 2015Q2

REPORT INFORMATION
  Report Type: Spontaneous
  Country: IT (occurrence: IT)
  Receive Date: 20141127
  Receipt Date: 20150415
  Transmission Date: 20150821
  Serious: Yes (Other)
  Sender: FDA-Public Use
  Company Number: IT-AUROBINDO-AUR-APL-2014-12411

PATIENT
  Age: 42 Year
  Sex: Female
  Weight: 40 kg

DRUGS (3)
  1. LEVOFLOXACIN 500MG [Suspect]
     Active Substance: LEVOFLOXACIN
     Indication: HELICOBACTER GASTRITIS
     Dosage: 500 MG, TWO TIMES A DAY
     Route: 048
     Dates: start: 20140830, end: 20140831
  2. ESOMEPRAZOLE MAGNESIUM. [Concomitant]
     Active Substance: ESOMEPRAZOLE MAGNESIUM
     Indication: HELICOBACTER GASTRITIS
     Dosage: 20 MG, TWO TIMES A DAY
     Route: 048
     Dates: start: 20140830, end: 20140830
  3. AMBRAMYCIN [Concomitant]
     Active Substance: TETRACYCLINE HYDROCHLORIDE
     Indication: HELICOBACTER GASTRITIS
     Dosage: 250 MG, FOUR TIMES/DAY
     Route: 048
     Dates: start: 20140830, end: 20140830

REACTIONS (3)
  - Vertigo [Recovered/Resolved]
  - Malaise [Recovered/Resolved]
  - Diplopia [Recovered/Resolved]

NARRATIVE: CASE EVENT DATE: 20140831
